FAERS Safety Report 11167069 (Version 1)
Quarter: 2015Q2

REPORT INFORMATION
  Report Type: Report from Study
  Country: AU (occurrence: AU)
  Receive Date: 20150605
  Receipt Date: 20150605
  Transmission Date: 20150821
  Serious: Yes (Death, Hospitalization, Other)
  Sender: FDA-Public Use
  Company Number: PHHY2013AU145934

PATIENT
  Age: 70 Year
  Sex: Male

DRUGS (1)
  1. CLOZARIL [Suspect]
     Active Substance: CLOZAPINE
     Indication: PSYCHOTIC DISORDER
     Dosage: 200 MG
     Route: 065
     Dates: start: 19970228

REACTIONS (3)
  - White blood cell count increased [Fatal]
  - Neutrophil count increased [Fatal]
  - Temporal arteritis [Fatal]

NARRATIVE: CASE EVENT DATE: 20130518
